FAERS Safety Report 7624887-4 (Version None)
Quarter: 2011Q3

REPORT INFORMATION
  Report Type: 
  Country: None (occurrence: None)
  Receive Date: 20110720
  Receipt Date: 20110714
  Transmission Date: 20111222
  Serious: Yes (Hospitalization)
  Sender: FDA-Public Use
  Company Number: US-GILEAD-2011-0037020

PATIENT
  Sex: Male

DRUGS (1)
  1. LETAIRIS [Suspect]
     Indication: PULMONARY HYPERTENSION
     Route: 048
     Dates: start: 20091222

REACTIONS (5)
  - UNEVALUABLE EVENT [None]
  - CONVULSION [None]
  - DYSPNOEA [None]
  - BLOOD PRESSURE DECREASED [None]
  - PALPITATIONS [None]
